FAERS Safety Report 26074224 (Version 2)
Quarter: 2025Q4

REPORT INFORMATION
  Report Type: Spontaneous
  Country: US (occurrence: US)
  Receive Date: 20251121
  Receipt Date: 20251210
  Transmission Date: 20260118
  Serious: No
  Sender: GILEAD
  Company Number: US-GILEAD-2025-0736324

PATIENT
  Age: 39 Year
  Sex: Male
  Weight: 67.12 kg

DRUGS (4)
  1. YEZTUGO [Suspect]
     Active Substance: LENACAPAVIR SODIUM
     Indication: Prophylaxis against HIV infection
     Dosage: UNK
     Route: 058
     Dates: start: 20251111, end: 20251111
  2. YEZTUGO [Suspect]
     Active Substance: LENACAPAVIR SODIUM
     Dosage: UNK
     Route: 058
     Dates: start: 20251111, end: 20251111
  3. YEZTUGO [Suspect]
     Active Substance: LENACAPAVIR SODIUM
     Dosage: UNK
     Route: 058
     Dates: start: 20251111, end: 20251111
  4. YEZTUGO [Suspect]
     Active Substance: LENACAPAVIR SODIUM
     Indication: Prophylaxis against HIV infection
     Dosage: UNK
     Route: 065

REACTIONS (3)
  - Injection site discharge [Recovered/Resolved]
  - Injection site discomfort [Recovered/Resolved]
  - Off label use [Unknown]

NARRATIVE: CASE EVENT DATE: 20251111
